FAERS Safety Report 13550127 (Version 1)
Quarter: 2017Q2

REPORT INFORMATION
  Report Type: Spontaneous
  Country: GB (occurrence: US)
  Receive Date: 20170516
  Receipt Date: 20170516
  Transmission Date: 20170830
  Serious: Yes (Congenital Anomaly)
  Sender: FDA-Public Use
  Company Number: US-CANTON LABORATORIES, LLC-2020807

PATIENT

DRUGS (7)
  1. GABAPENTIN. [Suspect]
     Active Substance: GABAPENTIN
     Route: 064
     Dates: start: 20160105
  2. HUMALOG [Suspect]
     Active Substance: INSULIN LISPRO
     Route: 064
     Dates: start: 20061127
  3. ONDANSETRON [Concomitant]
     Active Substance: ONDANSETRON
     Route: 064
  4. PROCHLORPERAZINE MALEATE. [Concomitant]
     Active Substance: PROCHLORPERAZINE MALEATE
     Route: 064
  5. NAPROSYN [Suspect]
     Active Substance: NAPROXEN
     Indication: BACK PAIN
     Route: 064
  6. TRESIBA [Suspect]
     Active Substance: INSULIN DEGLUDEC
     Route: 064
     Dates: start: 20160201, end: 20170123
  7. SERTRALINE [Suspect]
     Active Substance: SERTRALINE HYDROCHLORIDE
     Route: 064

REACTIONS (3)
  - Foetal exposure during pregnancy [Unknown]
  - Congenital cardiovascular anomaly [Not Recovered/Not Resolved]
  - Abdominal transposition [Unknown]

NARRATIVE: CASE EVENT DATE: 20170411
